FAERS Safety Report 14187758 (Version 1)
Quarter: 2017Q4

REPORT INFORMATION
  Report Type: Spontaneous
  Country: US (occurrence: None)
  Receive Date: 20171114
  Receipt Date: 20171114
  Transmission Date: 20180321
  Serious: Yes (Other)
  Sender: FDA-Public Use
  Company Number: None

PATIENT
  Age: 69 Year
  Sex: Female
  Weight: 52.16 kg

DRUGS (4)
  1. KEFLEX [Suspect]
     Active Substance: CEPHALEXIN
     Indication: URINARY TRACT INFECTION
     Route: 048
     Dates: start: 20171010
  2. CENTRUM VITAMIN/MINERAL [Concomitant]
  3. OXYGEN. [Concomitant]
     Active Substance: OXYGEN
  4. AMOXICILLIN. [Concomitant]
     Active Substance: AMOXICILLIN

REACTIONS (4)
  - Flatulence [None]
  - Urinary tract infection [None]
  - Abdominal pain [None]
  - Disease recurrence [None]

NARRATIVE: CASE EVENT DATE: 20171010
